FAERS Safety Report 15163185 (Version 1)
Quarter: 2018Q3

REPORT INFORMATION
  Report Type: Spontaneous
  Country: MW (occurrence: MW)
  Receive Date: 20180718
  Receipt Date: 20180718
  Transmission Date: 20181010
  Serious: Yes (Other)
  Sender: FDA-Public Use
  Company Number: MW-009507513-1611MWI014109

PATIENT
  Age: 32 Year
  Sex: Female

DRUGS (2)
  1. RALTEGRAVIR POTASSIUM [Suspect]
     Active Substance: RALTEGRAVIR POTASSIUM
     Dosage: 2 DF, QD
     Route: 048
  2. LOPINAVIR (+) RITONAVIR [Suspect]
     Active Substance: LOPINAVIR\RITONAVIR
     Dosage: 4 DF, QD
     Route: 048

REACTIONS (2)
  - Premature labour [Unknown]
  - Maternal exposure during pregnancy [Recovered/Resolved]

NARRATIVE: CASE EVENT DATE: 20120131
